FAERS Safety Report 15621376 (Version 3)
Quarter: 2018Q4

REPORT INFORMATION
  Report Type: Spontaneous
  Country: JP (occurrence: JP)
  Receive Date: 20181115
  Receipt Date: 20181129
  Transmission Date: 20190205
  Serious: Yes (Death, Other)
  Sender: FDA-Public Use
  Company Number: JP-OTSUKA-2018_036157

PATIENT
  Age: 60 Year
  Sex: Male
  Weight: 115 kg

DRUGS (20)
  1. REXULTI [Suspect]
     Active Substance: BREXPIPRAZOLE
     Indication: SCHIZOPHRENIA
     Dosage: 1 MG, DAILY DOSE (BEFORE BEDTIME)
     Route: 048
     Dates: start: 20180525, end: 20180528
  2. RISPERIDONE. [Suspect]
     Active Substance: RISPERIDONE
     Dosage: 2 MG, DAILY DOSE (BEFORE DINNER)
     Route: 048
     Dates: start: 20180913, end: 20181031
  3. DEPAKENE [Concomitant]
     Active Substance: VALPROIC ACID
     Indication: PRODUCT USED FOR UNKNOWN INDICATION
     Dosage: 600 MG, DAILY DOSE (BEFORE DINNER)
     Route: 048
     Dates: start: 20170925, end: 20181108
  4. SHOSEIRYUTO [Concomitant]
     Active Substance: EPHEDRA SINICA STEM\HERBALS
     Indication: PRODUCT USED FOR UNKNOWN INDICATION
     Dosage: 3 DF, DIVIDED INTO 3 DOSES(BEFORE EVERY MEAL)
     Route: 065
     Dates: start: 20180607, end: 20180613
  5. RISPERIDONE. [Suspect]
     Active Substance: RISPERIDONE
     Indication: SCHIZOPHRENIA
     Dosage: 2 MG, DAILY DOSE (BEFORE DINNER)
     Route: 048
     Dates: start: 20181101, end: 20181108
  6. FERROMIA [Concomitant]
     Active Substance: SODIUM FERROUS CITRATE
     Indication: PRODUCT USED FOR UNKNOWN INDICATION
     Dosage: 1 DF, BEFORE BREAKFAST
     Route: 065
  7. AMITIZA [Concomitant]
     Active Substance: LUBIPROSTONE
     Indication: PRODUCT USED FOR UNKNOWN INDICATION
     Dosage: 2 DF, DIVIDEDINTO 2 DOSES(BEFORE BREAKFAST AND DINNER)
     Route: 065
  8. BOSMIN [Concomitant]
     Active Substance: EPINEPHRINE
     Indication: PRODUCT USED FOR UNKNOWN INDICATION
     Dosage: 3 DF, UNK
     Route: 042
     Dates: start: 20181109
  9. REXULTI [Suspect]
     Active Substance: BREXPIPRAZOLE
     Indication: SCHIZOPHRENIA
     Dosage: 2 MG, DAILY DOSE (BEFORE BEDTIME)
     Route: 048
     Dates: start: 20180529, end: 20181108
  10. LODOPIN [Suspect]
     Active Substance: ZOTEPINE
     Indication: SCHIZOPHRENIA
     Dosage: 1 DF*1, DAILY DOSE (BEFORE BREAKFAST)
     Route: 048
     Dates: start: 20180416, end: 20181108
  11. BENZALIN [Concomitant]
     Active Substance: NITRAZEPAM
     Indication: PRODUCT USED FOR UNKNOWN INDICATION
     Dosage: 10 MG, DAILY DOSE (BEFORE BEDTIME)
     Route: 048
     Dates: start: 20171002, end: 20181108
  12. ALOSENN [Concomitant]
     Active Substance: SENNA LEAF
     Indication: PRODUCT USED FOR UNKNOWN INDICATION
     Dosage: 1 G, BEFORE BEDTIME
     Route: 065
  13. SILECE [Concomitant]
     Active Substance: FLUNITRAZEPAM
     Indication: PRODUCT USED FOR UNKNOWN INDICATION
     Dosage: 2 MG, DAILY DOSE (BEFORE BEDTIME)
     Route: 048
     Dates: start: 20170821, end: 20181108
  14. LANSOPRAZOLE. [Concomitant]
     Active Substance: LANSOPRAZOLE
     Indication: PRODUCT USED FOR UNKNOWN INDICATION
     Dosage: 1 DF, BEFORE BREAKFAST
     Route: 065
  15. BIPERIDEN HYDROCHLORIDE [Concomitant]
     Active Substance: BIPERIDEN HYDROCHLORIDE
     Indication: PRODUCT USED FOR UNKNOWN INDICATION
     Dosage: 2 MG, DAILYDOSE(BEFORE BREAKFAST AND DINNER)
     Route: 048
  16. PURSENNID [Concomitant]
     Active Substance: SENNOSIDES A AND B
     Indication: PRODUCT USED FOR UNKNOWN INDICATION
     Dosage: 4 DF, BEFORE BEDTIME
     Route: 065
  17. SEISHOKU [Concomitant]
     Active Substance: SODIUM CHLORIDE
     Indication: PRODUCT USED FOR UNKNOWN INDICATION
     Dosage: 1 DF, UNK
     Route: 041
     Dates: start: 20181109
  18. LODOPIN [Suspect]
     Active Substance: ZOTEPINE
     Indication: SCHIZOPHRENIA
     Dosage: 1 DF*2, DAILY DOSE (BEFORE BEDTIME)
     Route: 048
     Dates: start: 20180416, end: 20181108
  19. RISPERIDONE. [Suspect]
     Active Substance: RISPERIDONE
     Indication: SCHIZOPHRENIA
     Dosage: 1 MG, DAILY DOSE (BEFORE DINNER)
     Route: 048
     Dates: start: 20181101, end: 20181108
  20. MAGNESIUM OXIDE. [Concomitant]
     Active Substance: MAGNESIUM OXIDE
     Indication: PRODUCT USED FOR UNKNOWN INDICATION
     Dosage: 3 DF, DIVIDED INTO 3 DOSES (BEFORE BREAKFAST, DINNER AND BEDTIME)
     Route: 065

REACTIONS (5)
  - Pulmonary embolism [Fatal]
  - Myocardial infarction [Fatal]
  - Sudden death [Fatal]
  - Hallucination [Unknown]
  - Delusion [Unknown]

NARRATIVE: CASE EVENT DATE: 20181101
